FAERS Safety Report 19418730 (Version 2)
Quarter: 2021Q2

REPORT INFORMATION
  Report Type: Report from Study
  Country: ES (occurrence: ES)
  Receive Date: 20210615
  Receipt Date: 20210618
  Transmission Date: 20210717
  Serious: Yes (Death, Other)
  Sender: FDA-Public Use
  Company Number: ES-GLAXOSMITHKLINE-ES2021GSK128439

PATIENT
  Sex: Female
  Weight: 50 kg

DRUGS (1)
  1. DOSTARLIMAB [Suspect]
     Active Substance: DOSTARLIMAB
     Indication: ENDOMETRIAL CANCER
     Dosage: UNK
     Route: 042
     Dates: start: 20210608, end: 20210608

REACTIONS (2)
  - Tumour haemorrhage [Fatal]
  - Intermenstrual bleeding [Fatal]

NARRATIVE: CASE EVENT DATE: 20210610
